FAERS Safety Report 15387623 (Version 8)
Quarter: 2019Q3

REPORT INFORMATION
  Report Type: Report from Study
  Country: US (occurrence: US)
  Receive Date: 20180914
  Receipt Date: 20190813
  Transmission Date: 20191004
  Serious: Yes (Hospitalization, Other)
  Sender: FDA-Public Use
  Company Number: US-ACTELION-A-NJ2017-162059

PATIENT
  Age: 46 Year
  Sex: Male
  Weight: 169.62 kg

DRUGS (7)
  1. LETAIRIS [Suspect]
     Active Substance: AMBRISENTAN
     Indication: PRODUCT USED FOR UNKNOWN INDICATION
     Dosage: UNK
     Route: 065
  2. WARFARIN [Concomitant]
     Active Substance: WARFARIN
  3. VELETRI [Suspect]
     Active Substance: EPOPROSTENOL
     Indication: PULMONARY ARTERIAL HYPERTENSION
     Dosage: 37.7 NG/KG, PER MIN
     Route: 042
  4. ADCIRCA [Concomitant]
     Active Substance: TADALAFIL
  5. VELETRI [Suspect]
     Active Substance: EPOPROSTENOL
     Dosage: 6 NG/KG, PER MIN
     Route: 042
  6. ALTEPLASE. [Concomitant]
     Active Substance: ALTEPLASE
  7. VELETRI [Suspect]
     Active Substance: EPOPROSTENOL
     Dosage: 35 NG/KG, PER MIN
     Route: 042

REACTIONS (28)
  - Catheter management [Unknown]
  - Erythema [Unknown]
  - Memory impairment [Unknown]
  - Device damage [Unknown]
  - Flushing [Unknown]
  - Productive cough [Unknown]
  - Device occlusion [Unknown]
  - Device malfunction [Unknown]
  - Dyspnoea exertional [Not Recovered/Not Resolved]
  - Polycythaemia vera [Unknown]
  - Arthralgia [Unknown]
  - Rheumatoid arthritis [Unknown]
  - Nasal congestion [Unknown]
  - Dizziness [Unknown]
  - Headache [Unknown]
  - Faeces soft [Unknown]
  - Pain in extremity [Unknown]
  - Pain in jaw [Not Recovered/Not Resolved]
  - Dyspnoea [Not Recovered/Not Resolved]
  - Adverse event [Unknown]
  - Flank pain [Unknown]
  - Diarrhoea [Not Recovered/Not Resolved]
  - Device issue [Unknown]
  - Product dose omission [Unknown]
  - Device alarm issue [Recovered/Resolved]
  - Nausea [Unknown]
  - Peripheral swelling [Unknown]
  - Fluid retention [Unknown]

NARRATIVE: CASE EVENT DATE: 20180816
